FAERS Safety Report 9117932 (Version 1)
Quarter: 2013Q1

REPORT INFORMATION
  Report Type: Spontaneous
  Country: CA (occurrence: CA)
  Receive Date: 20130225
  Receipt Date: 20130225
  Transmission Date: 20140127
  Serious: Yes (Other)
  Sender: FDA-Public Use
  Company Number: CHPA2013CA003331

PATIENT
  Sex: Female

DRUGS (12)
  1. GAS-X CHEWABLE TABLETS CHERRY CREME [Suspect]
     Indication: FLATULENCE
     Dosage: 2 DF, PRN
     Route: 048
  2. GAS-X EXTRA STRENGTH [Suspect]
     Indication: FLATULENCE
     Dosage: UNK, ONCE/SINGLE
     Route: 048
     Dates: start: 2010, end: 2010
  3. INSULIN [Concomitant]
     Indication: DIABETES MELLITUS
     Dosage: UNK, QD
  4. FERAMAX [Concomitant]
     Indication: RED BLOOD CELL COUNT DECREASED
     Dosage: 2 DF, QD
  5. METFORMIN [Concomitant]
     Indication: DIABETES MELLITUS
     Dosage: 4 DF, QD
     Dates: start: 1995
  6. CALCIUM [Concomitant]
     Dosage: UNK, UNK
  7. GLUCOSAMINE [Concomitant]
     Indication: ARTHROPATHY
     Dosage: UNK, UNK
  8. ALENDRONATE [Concomitant]
     Dosage: UNK, QW
  9. HYDROCHLOROTHIAZIDE [Concomitant]
     Indication: HYPERTENSION
     Dosage: UNK, QD
  10. SYNTHROID [Concomitant]
     Dosage: UNK, QD
  11. ATORVASTATIN [Concomitant]
     Indication: BLOOD CHOLESTEROL
     Dosage: UNK, QOD
  12. RAMIPRIL [Concomitant]
     Indication: HYPERTENSION
     Dosage: UNK, QD

REACTIONS (1)
  - Large intestine polyp [Recovered/Resolved]
